FAERS Safety Report 17806088 (Version 1)
Quarter: 2020Q2

REPORT INFORMATION
  Report Type: Report from Study
  Country: IT (occurrence: IT)
  Receive Date: 20200520
  Receipt Date: 20200520
  Transmission Date: 20200714
  Serious: Yes (Death)
  Sender: FDA-Public Use
  Company Number: IT-ACCORD-182350

PATIENT
  Age: 64 Year
  Sex: Male

DRUGS (11)
  1. PRASUGREL. [Suspect]
     Active Substance: PRASUGREL
     Indication: ISCHAEMIC HEART DISEASE PROPHYLAXIS
     Route: 048
     Dates: start: 20200101, end: 20200402
  2. EZETIMIBE. [Concomitant]
     Active Substance: EZETIMIBE
     Route: 048
  3. RAMIPRIL. [Concomitant]
     Active Substance: RAMIPRIL
     Route: 048
  4. LASIX [Concomitant]
     Active Substance: FUROSEMIDE
     Route: 048
  5. PANTORC [Concomitant]
     Active Substance: PANTOPRAZOLE SODIUM
     Dosage: STRENGTH: 20 MG
     Route: 048
  6. METFORMIN [Concomitant]
     Active Substance: METFORMIN HYDROCHLORIDE
     Route: 048
  7. ACETYLSALICYLIC ACID [Suspect]
     Active Substance: ASPIRIN
     Indication: THROMBOSIS PROPHYLAXIS
     Route: 048
     Dates: start: 20200101, end: 20200402
  8. LUVION [Concomitant]
     Dosage: STRENGTH: 50 MG
     Route: 048
  9. JARDIANCE [Concomitant]
     Active Substance: EMPAGLIFLOZIN
     Route: 048
  10. ROSUVASTATIN/ROSUVASTATIN CALCIUM [Concomitant]
     Active Substance: ROSUVASTATIN CALCIUM
     Route: 048
  11. BISOPROLOL FUMARATE. [Concomitant]
     Active Substance: BISOPROLOL FUMARATE
     Route: 048

REACTIONS (4)
  - Cardio-respiratory arrest [Fatal]
  - Coma [Fatal]
  - Cerebral haemorrhage [Fatal]
  - Epistaxis [Fatal]

NARRATIVE: CASE EVENT DATE: 20200402
